FAERS Safety Report 10440081 (Version 1)
Quarter: 2014Q3

REPORT INFORMATION
  Report Type: Spontaneous
  Country: US (occurrence: US)
  Receive Date: 20140908
  Receipt Date: 20140908
  Transmission Date: 20150326
  Serious: No
  Sender: FDA-Public Use
  Company Number: US-BRISTOL-MYERS SQUIBB COMPANY-20689527

PATIENT
  Age: 23 Year
  Sex: Male

DRUGS (2)
  1. ALCOHOL. [Suspect]
     Active Substance: ALCOHOL
  2. ABILIFY [Suspect]
     Active Substance: ARIPIPRAZOLE
     Route: 065
     Dates: start: 20140321

REACTIONS (1)
  - Alcohol use [Unknown]
